FAERS Safety Report 6897836-4 (Version None)
Quarter: 2010Q3

REPORT INFORMATION
  Report Type: 
  Country: None (occurrence: None)
  Receive Date: 20100802
  Receipt Date: 20070725
  Transmission Date: 20110219
  Serious: No
  Sender: FDA-Public Use
  Company Number: US-PFIZER INC-2007062687

PATIENT
  Sex: Female

DRUGS (4)
  1. LYRICA [Suspect]
     Indication: NEUROPATHY PERIPHERAL
     Dates: start: 20070101
  2. ACTOS [Suspect]
     Indication: DIABETES MELLITUS
     Dates: start: 20070101
  3. AVANDIA [Concomitant]
     Dates: end: 20070101
  4. VALSARTAN [Concomitant]

REACTIONS (1)
  - OEDEMA PERIPHERAL [None]
